FAERS Safety Report 12116662 (Version 1)
Quarter: 2016Q1

REPORT INFORMATION
  Report Type: Spontaneous
  Country: US (occurrence: US)
  Receive Date: 20160225
  Receipt Date: 20160225
  Transmission Date: 20160526
  Serious: Yes (Other)
  Sender: FDA-Public Use
  Company Number: US-BAYER-2016-036959

PATIENT
  Age: 40 Year
  Sex: Female

DRUGS (1)
  1. AFRIN ORIGINAL [Suspect]
     Active Substance: OXYMETAZOLINE HYDROCHLORIDE
     Indication: NASOPHARYNGITIS
     Dosage: 6 SPRAYS/DAY
     Route: 045
     Dates: start: 1995, end: 1997

REACTIONS (3)
  - Drug dependence [Unknown]
  - Product use issue [None]
  - Abnormal behaviour [None]
